FAERS Safety Report 7441103-7 (Version None)
Quarter: 2011Q2

REPORT INFORMATION
  Report Type: 
  Country: None (occurrence: None)
  Receive Date: 20110427
  Receipt Date: 20110421
  Transmission Date: 20111010
  Serious: Yes (Other)
  Sender: FDA-Public Use
  Company Number: US-CEPHALON-2011000927

PATIENT
  Sex: Male
  Weight: 70 kg

DRUGS (4)
  1. NUVIGIL [Suspect]
     Indication: SLEEP APNOEA SYNDROME
     Route: 048
     Dates: start: 20101011, end: 20110224
  2. LEXAPRO [Concomitant]
  3. PRILOSEC [Concomitant]
     Dates: start: 20100601
  4. MULTI-VITAMINS [Concomitant]

REACTIONS (7)
  - TEARFULNESS [None]
  - DISTURBANCE IN ATTENTION [None]
  - AGGRESSION [None]
  - AGITATION [None]
  - RESTLESSNESS [None]
  - DYSKINESIA [None]
  - ANXIETY [None]
